FAERS Safety Report 9737521 (Version 1)
Quarter: 2013Q4

REPORT INFORMATION
  Report Type: Spontaneous
  Country: AU (occurrence: AU)
  Receive Date: 20131207
  Receipt Date: 20131207
  Transmission Date: 20140711
  Serious: Yes (Other)
  Sender: FDA-Public Use
  Company Number: AU-AMGEN-AUSSP2013084773

PATIENT
  Age: 85 Year
  Sex: Male

DRUGS (3)
  1. XGEVA [Suspect]
     Indication: METASTASES TO BONE
     Dosage: 120 MG, UNK
     Route: 058
  2. CALCIUM [Concomitant]
     Dosage: 600 MG/400 IU, QD
  3. VITAMIN D                          /00107901/ [Concomitant]
     Dosage: 600 MG/400 IU, QD

REACTIONS (3)
  - Blood parathyroid hormone increased [Unknown]
  - Electrocardiogram QT prolonged [Recovered/Resolved]
  - Hypocalcaemia [Not Recovered/Not Resolved]
